FAERS Safety Report 23725816 (Version 1)
Quarter: 2024Q2

REPORT INFORMATION
  Report Type: Spontaneous
  Country: ES (occurrence: ES)
  Receive Date: 20240410
  Receipt Date: 20240410
  Transmission Date: 20240716
  Serious: Yes (Other)
  Sender: FDA-Public Use
  Company Number: None

PATIENT
  Age: 63 Year
  Sex: Female

DRUGS (19)
  1. ERTAPENEM SODIUM [Interacting]
     Active Substance: ERTAPENEM SODIUM
     Indication: Haemophagocytic lymphohistiocytosis
     Dosage: 1 GRAM, Q24H (FORMULATION WAS ALSO REPORTED AS SUSPENSION FOR INJECTION)
     Route: 042
     Dates: start: 20231010, end: 20231013
  2. ERTAPENEM SODIUM [Interacting]
     Active Substance: ERTAPENEM SODIUM
     Indication: Angiocentric lymphoma
  3. ACETAMINOPHEN [Suspect]
     Active Substance: ACETAMINOPHEN
     Dosage: 1 GRAM, Q8H, ORAL SUSPENSION/SUSPENSION SACHET
     Route: 048
     Dates: start: 20230928, end: 20231010
  4. METHOTREXATE SODIUM [Interacting]
     Active Substance: METHOTREXATE SODIUM
     Indication: Haemophagocytic lymphohistiocytosis
     Dosage: 2250 MILLIGRAM, QD
     Route: 042
     Dates: start: 20231014, end: 20231014
  5. METHOTREXATE SODIUM [Interacting]
     Active Substance: METHOTREXATE SODIUM
     Indication: Angiocentric lymphoma
  6. FLUCONAZOLE [Interacting]
     Active Substance: FLUCONAZOLE
     Indication: Haemophagocytic lymphohistiocytosis
     Dosage: 100 MILLIGRAM, QD; 7 CAPSULES ADMINISTERED
     Route: 048
     Dates: start: 20231101, end: 20231109
  7. FLUCONAZOLE [Interacting]
     Active Substance: FLUCONAZOLE
     Indication: Angiocentric lymphoma
  8. CISPLATIN [Interacting]
     Active Substance: CISPLATIN
     Indication: Haemophagocytic lymphohistiocytosis
     Dosage: 30 MILLIGRAM, QD
     Route: 042
     Dates: start: 20231116, end: 20231122
  9. CISPLATIN [Interacting]
     Active Substance: CISPLATIN
     Indication: Angiocentric lymphoma
  10. AMOXICILLIN\CLAVULANIC ACID [Interacting]
     Active Substance: AMOXICILLIN\CLAVULANIC ACID
     Indication: Haemophagocytic lymphohistiocytosis
     Dosage: 1 GRAM, Q8H
     Route: 042
     Dates: start: 20230928, end: 20231009
  11. AMOXICILLIN\CLAVULANIC ACID [Interacting]
     Active Substance: AMOXICILLIN\CLAVULANIC ACID
     Indication: Angiocentric lymphoma
  12. FLUCONAZOLE [Interacting]
     Active Substance: FLUCONAZOLE
     Indication: Angiocentric lymphoma
     Dosage: 100 MILLIGRAM, QD (STRENGTH: 100 MG INJECTION INFUSION 50 ML)
     Route: 042
     Dates: start: 20231012, end: 20231014
  13. FLUCONAZOLE [Interacting]
     Active Substance: FLUCONAZOLE
     Indication: Haemophagocytic lymphohistiocytosis
  14. GEMCITABINE [Interacting]
     Active Substance: GEMCITABINE
     Indication: Haemophagocytic lymphohistiocytosis
     Dosage: 1200 MILLIGRAM, QW
     Route: 042
     Dates: start: 20231115, end: 20231122
  15. GEMCITABINE [Interacting]
     Active Substance: GEMCITABINE
     Indication: Angiocentric lymphoma
     Route: 042
     Dates: start: 20231226, end: 20231226
  16. IFOSFAMIDE [Interacting]
     Active Substance: IFOSFAMIDE
     Indication: Haemophagocytic lymphohistiocytosis
     Dosage: 1688 MILLIGRAM, QD
     Route: 042
     Dates: start: 20231015, end: 20231017
  17. IFOSFAMIDE [Interacting]
     Active Substance: IFOSFAMIDE
     Indication: Angiocentric lymphoma
  18. ETOPOSIDE [Interacting]
     Active Substance: ETOPOSIDE
     Indication: Angiocentric lymphoma
     Route: 042
     Dates: start: 20231015, end: 20231017
  19. ETOPOSIDE [Interacting]
     Active Substance: ETOPOSIDE
     Indication: Haemophagocytic lymphohistiocytosis

REACTIONS (5)
  - Mixed liver injury [Recovered/Resolved]
  - Hyperbilirubinaemia [Recovered/Resolved]
  - Hyperbilirubinaemia [Recovered/Resolved]
  - Coagulopathy [Recovered/Resolved]
  - Mixed liver injury [Recovered/Resolved]

NARRATIVE: CASE EVENT DATE: 20231013
